FAERS Safety Report 7964446-7 (Version None)
Quarter: 2011Q4

REPORT INFORMATION
  Report Type: 
  Country: None (occurrence: None)
  Receive Date: 20111208
  Receipt Date: 20111128
  Transmission Date: 20120403
  Serious: Yes (Hospitalization)
  Sender: FDA-Public Use
  Company Number: US-JNJFOC-20110803815

PATIENT
  Sex: Male
  Weight: 60.2 kg

DRUGS (4)
  1. REMICADE [Suspect]
     Indication: CROHN'S DISEASE
     Route: 042
     Dates: start: 20101101
  2. PREDNISONE TAB [Concomitant]
  3. METHOTREXATE [Concomitant]
  4. REMICADE [Suspect]
     Route: 042
     Dates: start: 20020801, end: 20091119

REACTIONS (1)
  - CROHN'S DISEASE [None]
